FAERS Safety Report 7021480-1 (Version None)
Quarter: 2010Q3

REPORT INFORMATION
  Report Type: 
  Country: None (occurrence: None)
  Receive Date: 20100928
  Receipt Date: 20100920
  Transmission Date: 20110219
  Serious: Yes (Other)
  Sender: FDA-Public Use
  Company Number: 2010SP050483

PATIENT
  Age: 24 Year
  Sex: Female
  Weight: 93.0781 kg

DRUGS (1)
  1. IMPLANON [Suspect]
     Indication: PRODUCT USED FOR UNKNOWN INDICATION
     Dates: start: 20090213, end: 20100920

REACTIONS (4)
  - LIP SWELLING [None]
  - NIPPLE PAIN [None]
  - RASH [None]
  - SWELLING FACE [None]
